FAERS Safety Report 16818112 (Version 1)
Quarter: 2019Q3

REPORT INFORMATION
  Report Type: Spontaneous
  Country: GB (occurrence: GB)
  Receive Date: 20190917
  Receipt Date: 20190917
  Transmission Date: 20191005
  Serious: Yes (Hospitalization)
  Sender: FDA-Public Use
  Company Number: GB-MYLANLABS-2019M1086148

PATIENT
  Age: 68 Year
  Sex: Female
  Weight: 35.5 kg

DRUGS (9)
  1. LANSOPRAZOLE. [Concomitant]
     Active Substance: LANSOPRAZOLE
  2. CLARITHROMYCIN. [Suspect]
     Active Substance: CLARITHROMYCIN
     Indication: PRODUCT USED FOR UNKNOWN INDICATION
     Dosage: UNK
  3. RISPERIDONE. [Interacting]
     Active Substance: RISPERIDONE
     Indication: SCHIZOPHRENIA
     Dosage: 4 MILLIGRAM, QD
     Route: 048
     Dates: start: 20181101
  4. ENOXAPARIN [Concomitant]
     Active Substance: ENOXAPARIN
  5. PREDNISOLONE. [Concomitant]
     Active Substance: PREDNISOLONE
  6. SALBUTAMOL [Concomitant]
     Active Substance: ALBUTEROL
  7. CO-AMOXICLAV                       /00756801/ [Concomitant]
     Active Substance: AMOXICILLIN\CLAVULANIC ACID
  8. TAZOCIN [Concomitant]
     Active Substance: PIPERACILLIN SODIUM\TAZOBACTAM SODIUM
  9. IPRATROPIUM [Concomitant]
     Active Substance: IPRATROPIUM

REACTIONS (8)
  - Cough [Unknown]
  - Vomiting [Recovered/Resolved]
  - Electrocardiogram QT prolonged [Not Recovered/Not Resolved]
  - Lower respiratory tract infection [Unknown]
  - Pyrexia [Unknown]
  - Malaise [Unknown]
  - Crepitations [Unknown]
  - Drug interaction [Unknown]

NARRATIVE: CASE EVENT DATE: 20190327
